FAERS Safety Report 8555018-4 (Version None)
Quarter: 2012Q3

REPORT INFORMATION
  Report Type: 
  Country: None (occurrence: None)
  Receive Date: 20120731
  Receipt Date: 20120726
  Transmission Date: 20120928
  Serious: Yes (Other)
  Sender: FDA-Public Use
  Company Number: JP-JNJFOC-20120605321

PATIENT
  Sex: Male
  Weight: 103 kg

DRUGS (6)
  1. STELARA [Suspect]
     Indication: PSORIASIS
     Route: 058
     Dates: start: 20110727, end: 20110727
  2. BETAMETHASONE SODIUM PHOSPHATE [Concomitant]
     Indication: PSORIASIS
     Route: 061
     Dates: start: 20101208
  3. OXAROL [Concomitant]
     Indication: PSORIASIS
     Route: 061
     Dates: start: 20101208
  4. LOCOID [Concomitant]
     Indication: PSORIASIS
     Route: 061
     Dates: start: 20101208
  5. STELARA [Suspect]
     Route: 058
     Dates: start: 20110829, end: 20110829
  6. BETAMETHASONE [Concomitant]
     Indication: PSORIASIS
     Route: 061
     Dates: start: 20101208

REACTIONS (1)
  - LIVER DISORDER [None]
